FAERS Safety Report 18235806 (Version 2)
Quarter: 2020Q3

REPORT INFORMATION
  Report Type: Spontaneous
  Country: ES (occurrence: ES)
  Receive Date: 20200905
  Receipt Date: 20200911
  Transmission Date: 20201103
  Serious: Yes (Life-Threatening, Hospitalization)
  Sender: FDA-Public Use
  Company Number: NVSC2020ES113341

PATIENT
  Age: 8 Year
  Sex: Male

DRUGS (10)
  1. LEVETIRACETAM. [Suspect]
     Active Substance: LEVETIRACETAM
     Indication: EPILEPSY
  2. ACETAMINOPHEN. [Suspect]
     Active Substance: ACETAMINOPHEN
     Indication: SEIZURE
     Dosage: UNK
     Route: 065
  3. ACETAMINOPHEN. [Suspect]
     Active Substance: ACETAMINOPHEN
     Indication: FEBRILE INFECTION
  4. DIAZEPAM. [Concomitant]
     Active Substance: DIAZEPAM
     Indication: SEIZURE
     Dosage: UNK
     Route: 065
  5. DIAZEPAM. [Concomitant]
     Active Substance: DIAZEPAM
     Indication: EPILEPSY
  6. DIAZEPAM. [Concomitant]
     Active Substance: DIAZEPAM
     Indication: VIRAL INFECTION
  7. LEVETIRACETAM. [Suspect]
     Active Substance: LEVETIRACETAM
     Indication: SEIZURE
     Dosage: UNK
     Route: 048
  8. LEVETIRACETAM. [Suspect]
     Active Substance: LEVETIRACETAM
     Indication: VIRAL INFECTION
  9. ACETAMINOPHEN. [Suspect]
     Active Substance: ACETAMINOPHEN
     Indication: EPILEPSY
  10. ACETAMINOPHEN. [Suspect]
     Active Substance: ACETAMINOPHEN
     Indication: VIRAL INFECTION

REACTIONS (12)
  - Hypotension [Unknown]
  - Keratitis [Recovering/Resolving]
  - Melaena [Unknown]
  - Ulcerative keratitis [Recovering/Resolving]
  - Stomatitis haemorrhagic [Recovering/Resolving]
  - Acute kidney injury [Unknown]
  - Toxic epidermal necrolysis [Recovering/Resolving]
  - Mucosal erosion [Recovering/Resolving]
  - Blister [Unknown]
  - Epistaxis [Unknown]
  - Haemoglobin decreased [Unknown]
  - Rash erythematous [Unknown]
